FAERS Safety Report 10024700 (Version 1)
Quarter: 2014Q1

REPORT INFORMATION
  Report Type: Spontaneous
  Country: US (occurrence: None)
  Receive Date: 20140207
  Receipt Date: 20140207
  Transmission Date: 20141002
  Serious: Yes (Life-Threatening, Hospitalization)
  Sender: FDA-Public Use
  Company Number: SP07286

PATIENT
  Age: 51 Year
  Sex: Male
  Weight: 83.92 kg

DRUGS (15)
  1. RELISTOR (INJECTION) [Suspect]
     Indication: CONSTIPATION
     Route: 058
     Dates: start: 201311, end: 201311
  2. MIRTAZAPINE [Concomitant]
  3. LISINOPRIL [Concomitant]
  4. LANSOPRAZOLE [Concomitant]
  5. ADVAIR [Concomitant]
  6. ATORVASTATIN [Concomitant]
  7. TESTOSETERONE CYPIONATE [Concomitant]
  8. WELLBUTRIN [Concomitant]
  9. VOLTAREN [Concomitant]
  10. FLEXERIL [Concomitant]
  11. CYMBALTA [Concomitant]
  12. AMITRIPTYLINE [Concomitant]
  13. MSIR [Concomitant]
  14. KADIAN [Concomitant]
  15. AMITIZA [Concomitant]

REACTIONS (10)
  - Hypersomnia [None]
  - Renal failure acute [None]
  - Septic shock [None]
  - Secretion discharge [None]
  - Pneumonia aspiration [None]
  - Respiratory failure [None]
  - Hypercapnia [None]
  - Encephalopathy [None]
  - Chronic obstructive pulmonary disease [None]
  - Condition aggravated [None]
